FAERS Safety Report 13782475 (Version 1)
Quarter: 2017Q3

REPORT INFORMATION
  Report Type: Spontaneous
  Country: US (occurrence: US)
  Receive Date: 20170724
  Receipt Date: 20170724
  Transmission Date: 20171127
  Serious: No
  Sender: FDA-Public Use
  Company Number: US-IPSEN BIOPHARMACEUTICALS, INC.-2016-06726

PATIENT
  Sex: Female
  Weight: 68 kg

DRUGS (1)
  1. SOMATULINE [Suspect]
     Active Substance: LANREOTIDE ACETATE
     Indication: ACROMEGALY
     Dosage: 60 MG
     Route: 030
     Dates: start: 201507

REACTIONS (2)
  - Drug effect decreased [Unknown]
  - Incorrect route of drug administration [Unknown]
